FAERS Safety Report 8722335 (Version 5)
Quarter: 2014Q4

REPORT INFORMATION
  Report Type: Spontaneous
  Country: US (occurrence: US)
  Receive Date: 20120814
  Receipt Date: 20141205
  Transmission Date: 20150529
  Serious: Yes (Hospitalization, Other)
  Sender: FDA-Public Use
  Company Number: US-009507513-1208USA001925

PATIENT
  Sex: Female
  Weight: 70.3 kg

DRUGS (6)
  1. FOSAMAX [Suspect]
     Active Substance: ALENDRONATE SODIUM
     Indication: OSTEOPOROSIS
     Dosage: 70 MG, QW
     Route: 048
     Dates: start: 20011121, end: 20060123
  2. BONIVA [Suspect]
     Active Substance: IBANDRONATE SODIUM
     Indication: OSTEOPOROSIS
     Dosage: 150 MG, UNK
     Route: 048
     Dates: start: 20070625, end: 20101021
  3. ASCORBIC ACID. [Concomitant]
     Active Substance: ASCORBIC ACID
     Dosage: UNK
     Dates: start: 2000, end: 2010
  4. AMITRIPTYLINE HYDROCHLORIDE. [Concomitant]
     Active Substance: AMITRIPTYLINE HYDROCHLORIDE
     Indication: INSOMNIA
     Dosage: UNK
     Dates: start: 1989
  5. ACTONEL [Suspect]
     Active Substance: RISEDRONATE SODIUM
     Indication: OSTEOPOROSIS
     Dosage: 35 MG, UNK
     Route: 048
     Dates: start: 20060123, end: 20070625
  6. HORMONES (UNSPECIFIED) [Concomitant]
     Active Substance: UNSPECIFIED INGREDIENT
     Indication: MENOPAUSE
     Dosage: UNK
     Dates: start: 1982

REACTIONS (39)
  - Intramedullary rod insertion [Unknown]
  - Anaemia postoperative [Unknown]
  - Femur fracture [Unknown]
  - Cardiac murmur [Unknown]
  - Dysthymic disorder [Unknown]
  - Glucose tolerance impaired [Unknown]
  - Breast haemorrhage [Unknown]
  - Diverticulum intestinal [Unknown]
  - Colon adenoma [Unknown]
  - Fall [Unknown]
  - Intervertebral disc degeneration [Unknown]
  - Pelvic fracture [Unknown]
  - Muscle spasms [Unknown]
  - Fibromyalgia [Unknown]
  - Scapula fracture [Unknown]
  - Vitamin D deficiency [Unknown]
  - Gastrointestinal haemorrhage [Unknown]
  - Facet joint syndrome [Unknown]
  - Monoclonal gammopathy [Unknown]
  - Pain in extremity [Unknown]
  - Depression [Unknown]
  - Hypercholesterolaemia [Unknown]
  - Hypertension [Unknown]
  - Neck injury [Unknown]
  - Femur fracture [Unknown]
  - Anaemia postoperative [Unknown]
  - Bone lesion [Unknown]
  - Ankle fracture [Unknown]
  - Fibula fracture [Unknown]
  - Body height decreased [Unknown]
  - Bladder repair [Unknown]
  - Tooth disorder [Unknown]
  - Drug dose omission [Unknown]
  - Macular degeneration [Unknown]
  - Intramedullary rod insertion [Unknown]
  - Low turnover osteopathy [Unknown]
  - Fall [Unknown]
  - Arthritis [Unknown]
  - Ankle operation [Unknown]

NARRATIVE: CASE EVENT DATE: 200206
